FAERS Safety Report 9073158 (Version 1)
Quarter: 2013Q1

REPORT INFORMATION
  Report Type: Report from Study
  Country: US (occurrence: US)
  Receive Date: 20130129
  Receipt Date: 20130129
  Transmission Date: 20140127
  Serious: No
  Sender: FDA-Public Use
  Company Number: US-ABBOTT-12P-163-0921358-00

PATIENT
  Sex: Male
  Weight: 90.8 kg

DRUGS (8)
  1. HUMIRA 40 MG/0.8 ML PEN [Suspect]
     Indication: CROHN^S DISEASE
     Dates: start: 2009, end: 20120322
  2. PENTASA [Concomitant]
     Indication: CROHN^S DISEASE
  3. ALIGN [Concomitant]
     Indication: CROHN^S DISEASE
  4. CARDIZEM [Concomitant]
     Indication: HYPERTENSION
  5. OMEPRAZOLE [Concomitant]
     Indication: GASTROOESOPHAGEAL REFLUX DISEASE
  6. TAMSULOSIN [Concomitant]
     Indication: BENIGN PROSTATIC HYPERPLASIA
  7. ENBLEX [Concomitant]
     Indication: PROSTATE CANCER
  8. PAROXETINE [Concomitant]
     Indication: ANXIETY

REACTIONS (1)
  - Diarrhoea [Not Recovered/Not Resolved]
